FAERS Safety Report 4506081-9 (Version None)
Quarter: 2004Q4

REPORT INFORMATION
  Report Type: 
  Country: None (occurrence: None)
  Receive Date: 20041025
  Receipt Date: 20040506
  Transmission Date: 20050328
  Serious: Yes (Other)
  Sender: FDA-Public Use
  Company Number: US-JNJFOC-20040501427

PATIENT
  Sex: Male

DRUGS (4)
  1. REMICADE [Suspect]
     Indication: CROHN'S DISEASE
     Dosage: 5 MG/KG, INTRAVENOUS; PATIENT WAS ON INFLIXIMAB ONE YEAR AND A HALF AGO
     Route: 042
     Dates: start: 20040415
  2. REMICADE [Suspect]
     Indication: CROHN'S DISEASE
     Dosage: 5 MG/KG, INTRAVENOUS; PATIENT WAS ON INFLIXIMAB ONE YEAR AND A HALF AGO
     Route: 042
     Dates: start: 20040429
  3. BENADRYL [Concomitant]
  4. PREDNISONE [Concomitant]

REACTIONS (3)
  - DYSPNOEA [None]
  - FLANK PAIN [None]
  - OROPHARYNGEAL SWELLING [None]
